FAERS Safety Report 14189990 (Version 1)
Quarter: 2017Q4

REPORT INFORMATION
  Report Type: Spontaneous
  Country: US (occurrence: US)
  Receive Date: 20171115
  Receipt Date: 20171115
  Transmission Date: 20180321
  Serious: No
  Sender: FDA-Public Use
  Company Number: US-ASTRAZENECA-2017SF10212

PATIENT
  Sex: Female
  Weight: 76.2 kg

DRUGS (4)
  1. GABAPENTIN. [Suspect]
     Active Substance: GABAPENTIN
     Dosage: UNKNOWN DOSE
     Route: 065
  2. SYNTHROID [Concomitant]
     Active Substance: LEVOTHYROXINE SODIUM
     Indication: HYPOTHYROIDISM
     Dosage: UNKNOWN
     Route: 065
  3. BRILINTA [Suspect]
     Active Substance: TICAGRELOR
     Indication: STENT PLACEMENT
     Route: 048
     Dates: start: 20170801
  4. ASPIRIN EC [Concomitant]
     Active Substance: ASPIRIN
     Dosage: AT NIGHT
     Route: 065

REACTIONS (6)
  - Weight increased [Unknown]
  - Diarrhoea [Unknown]
  - Gastroenteritis viral [Recovered/Resolved]
  - Sinus disorder [Recovered/Resolved]
  - Asthenia [Unknown]
  - Feeling abnormal [Unknown]
